FAERS Safety Report 10354496 (Version 1)
Quarter: 2014Q3

REPORT INFORMATION
  Report Type: Spontaneous
  Country: US (occurrence: None)
  Receive Date: 20140729
  Receipt Date: 20140729
  Transmission Date: 20150326
  Serious: Yes (Disabling)
  Sender: FDA-Public Use
  Company Number: None

PATIENT
  Age: 71 Year
  Sex: Female
  Weight: 89.81 kg

DRUGS (8)
  1. SIMVASTATIN. [Concomitant]
     Active Substance: SIMVASTATIN
  2. ATELVIA [Suspect]
     Active Substance: RISEDRONATE SODIUM
     Indication: OSTEOPOROSIS
     Route: 048
     Dates: start: 20140702, end: 20140716
  3. SYNTHROID [Concomitant]
     Active Substance: LEVOTHYROXINE SODIUM
  4. CENTRUM SILVER [Concomitant]
     Active Substance: VITAMINS
  5. CITRACAL [Concomitant]
     Active Substance: CALCIUM CITRATE
  6. ATELVIA [Suspect]
     Active Substance: RISEDRONATE SODIUM
     Indication: DISCOMFORT
     Route: 048
     Dates: start: 20140702, end: 20140716
  7. 1200 DAILY CALCIUM-FOOD [Concomitant]
  8. VITAMIN D [Concomitant]
     Active Substance: CHOLECALCIFEROL

REACTIONS (3)
  - Dysphonia [None]
  - Chest pain [None]
  - Pulmonary congestion [None]

NARRATIVE: CASE EVENT DATE: 20140704
